FAERS Safety Report 5008770-9 (Version None)
Quarter: 2006Q2

REPORT INFORMATION
  Report Type: 
  Country: None (occurrence: None)
  Receive Date: 20060518
  Receipt Date: 20060504
  Transmission Date: 20061013
  Serious: Yes (Hospitalization, Other)
  Sender: FDA-Public Use
  Company Number: USA-2005-0018729

PATIENT
  Age: 39 Year
  Sex: Male
  Weight: 114.3 kg

DRUGS (9)
  1. MS CONTIN [Suspect]
     Dosage: 50 MG, TID
  2. OXYCONTIN [Concomitant]
  3. MORPHINE SULFATE [Concomitant]
  4. FLEXERIL [Concomitant]
  5. FLOVENT [Concomitant]
  6. ALBUTEROL [Concomitant]
  7. VIOXX [Concomitant]
  8. PERCOCET [Concomitant]
  9. ELAVIL [Concomitant]

REACTIONS (46)
  - ABDOMINAL PAIN [None]
  - ANOREXIA [None]
  - ARTHRALGIA [None]
  - ARTHRITIS [None]
  - BACK PAIN [None]
  - BLOOD URINE [None]
  - BODY TEMPERATURE DECREASED [None]
  - BUTTOCK PAIN [None]
  - DEPRESSION [None]
  - DIARRHOEA [None]
  - DIZZINESS [None]
  - DRUG DEPENDENCE [None]
  - DYSPNOEA [None]
  - DYSSTASIA [None]
  - EFFUSION [None]
  - FATIGUE [None]
  - FLANK PAIN [None]
  - GAIT DISTURBANCE [None]
  - HAEMORRHOIDS [None]
  - HEADACHE [None]
  - HYPOAESTHESIA [None]
  - INADEQUATE ANALGESIA [None]
  - JOINT EFFUSION [None]
  - JOINT SWELLING [None]
  - MENTAL STATUS CHANGES [None]
  - MOVEMENT DISORDER [None]
  - MUSCLE SPASMS [None]
  - MYOCARDIAL INFARCTION [None]
  - NAUSEA [None]
  - NECK PAIN [None]
  - NERVOUSNESS [None]
  - OVERWEIGHT [None]
  - PAIN IN EXTREMITY [None]
  - PAIN IN JAW [None]
  - PARAESTHESIA [None]
  - POOR QUALITY SLEEP [None]
  - PROCTALGIA [None]
  - RECTAL HAEMORRHAGE [None]
  - SEDATION [None]
  - SENSORY LOSS [None]
  - SLEEP DISORDER [None]
  - SPINAL COLUMN STENOSIS [None]
  - SYNCOPE [None]
  - VERTIGO [None]
  - WEIGHT DECREASED [None]
  - WEIGHT FLUCTUATION [None]
